FAERS Safety Report 6692919-6 (Version None)
Quarter: 2010Q2

REPORT INFORMATION
  Report Type: 
  Country: None (occurrence: None)
  Receive Date: 20100419
  Receipt Date: 20100406
  Transmission Date: 20101027
  Serious: Yes (Other)
  Sender: FDA-Public Use
  Company Number: 7000648

PATIENT
  Age: 49 Year
  Sex: Male

DRUGS (7)
  1. REBIF [Suspect]
     Indication: MULTIPLE SCLEROSIS
     Dosage: 44, 3 IN 1 WK
     Dates: start: 20070101
  2. IMUNEM (AZATHIOPRINE) [Concomitant]
  3. BACLOFEN [Concomitant]
  4. CLONAZEPAM [Concomitant]
  5. AMITRIPTYLINE HYDROCHLORIDE [Concomitant]
  6. FLUOXETINE [Concomitant]
  7. CHLORPROMAZINE [Concomitant]

REACTIONS (4)
  - CHOKING [None]
  - DYSARTHRIA [None]
  - FEEDING DISORDER [None]
  - HALLUCINATION [None]
